FAERS Safety Report 14365537 (Version 2)
Quarter: 2018Q3

REPORT INFORMATION
  Report Type: Spontaneous
  Country: AU (occurrence: AU)
  Receive Date: 20180109
  Receipt Date: 20180814
  Transmission Date: 20181010
  Serious: Yes (Other)
  Sender: FDA-Public Use
  Company Number: AU-CIPLA LTD.-2017AU30296

PATIENT

DRUGS (2)
  1. TEMOZOLOMIDE. [Suspect]
     Active Substance: TEMOZOLOMIDE
     Indication: RADICULAR PAIN
     Dosage: UNK
     Route: 048
  2. IRINOTECAN [Suspect]
     Active Substance: IRINOTECAN
     Indication: RADICULAR PAIN
     Dosage: UNK
     Route: 042

REACTIONS (2)
  - Gene mutation [Unknown]
  - Anaplastic astrocytoma [Unknown]
